FAERS Safety Report 13597224 (Version 3)
Quarter: 2017Q4

REPORT INFORMATION
  Report Type: Spontaneous
  Country: IT (occurrence: IT)
  Receive Date: 20170531
  Receipt Date: 20171030
  Transmission Date: 20180320
  Serious: Yes (Death, Other)
  Sender: FDA-Public Use
  Company Number: IT-B.I. PHARMACEUTICALS,INC./RIDGEFIELD-2017-BI-028445

PATIENT
  Age: 85 Year
  Sex: Male
  Weight: 65 kg

DRUGS (1)
  1. PRADAXA [Suspect]
     Active Substance: DABIGATRAN ETEXILATE MESYLATE
     Indication: ATRIAL FIBRILLATION
     Route: 048

REACTIONS (3)
  - Rectal haemorrhage [Unknown]
  - Cardiac failure [Fatal]
  - Pneumonia [Fatal]

NARRATIVE: CASE EVENT DATE: 20170519
